FAERS Safety Report 5955987-2 (Version None)
Quarter: 2008Q4

REPORT INFORMATION
  Report Type: 
  Country: None (occurrence: None)
  Receive Date: 20081112
  Receipt Date: 20081104
  Transmission Date: 20090506
  Serious: Yes (Other)
  Sender: FDA-Public Use
  Company Number: 2008AL011632

PATIENT
  Age: 46 Year
  Sex: Male

DRUGS (2)
  1. TEMAZEPAM [Suspect]
     Indication: SLEEP DISORDER
     Dosage: PO
     Route: 048
     Dates: start: 20070215
  2. AVELOX [Concomitant]

REACTIONS (4)
  - EMOTIONAL DISORDER [None]
  - EMOTIONAL DISTRESS [None]
  - ROAD TRAFFIC ACCIDENT [None]
  - SOMNAMBULISM [None]
